FAERS Safety Report 23855789 (Version 1)
Quarter: 2024Q2

REPORT INFORMATION
  Report Type: Report from Study
  Country: US (occurrence: US)
  Receive Date: 20240514
  Receipt Date: 20240514
  Transmission Date: 20240715
  Serious: Yes (Other)
  Sender: FDA-Public Use
  Company Number: US-ABBVIE-5759873

PATIENT
  Age: 59 Year
  Sex: Female

DRUGS (1)
  1. SKYRIZI [Suspect]
     Active Substance: RISANKIZUMAB-RZAA
     Indication: Psoriatic arthropathy
     Route: 058
     Dates: start: 20220201

REACTIONS (6)
  - Hip arthroplasty [Recovering/Resolving]
  - Rash macular [Recovering/Resolving]
  - Hip arthroplasty [Recovered/Resolved]
  - Skin discolouration [Recovering/Resolving]
  - Pruritus [Recovering/Resolving]
  - Therapeutic response shortened [Recovering/Resolving]

NARRATIVE: CASE EVENT DATE: 20220901
